FAERS Safety Report 4624019-0 (Version None)
Quarter: 2005Q1

REPORT INFORMATION
  Report Type: 
  Country: None (occurrence: None)
  Receive Date: 20050328
  Receipt Date: 20050318
  Transmission Date: 20050727
  Serious: Yes (Hospitalization, Disabling)
  Sender: FDA-Public Use
  Company Number: THYM-10416

PATIENT
  Age: 18 Month
  Sex: Male
  Weight: 11.6 kg

DRUGS (13)
  1. THYMOGLOBULIN [Suspect]
     Indication: BONE MARROW TRANSPLANT
     Dosage: 2.5 MG/KG QD IV
     Route: 042
     Dates: start: 20050127, end: 20050130
  2. HYDROCORTISONE [Concomitant]
  3. CHLORPHENIRAMINE MALEATE [Concomitant]
  4. COTRIM [Concomitant]
  5. AMBISOME [Concomitant]
  6. ACYCLOVIR [Concomitant]
  7. IMMUNE GLOBULIN INTRAVENOUS (HUMAN) [Concomitant]
  8. ISONIAZID [Concomitant]
  9. CLARITHROMYCIN [Concomitant]
  10. CEFTAZIDIME [Concomitant]
  11. HYDROCORTISONE [Concomitant]
  12. PARACETAMOL [Concomitant]
  13. CHLORPHENIRAMINE MALEATE [Concomitant]

REACTIONS (4)
  - APALLIC SYNDROME [None]
  - ENCEPHALITIS HERPES [None]
  - ENCEPHALOPATHY [None]
  - FEBRILE CONVULSION [None]
